FAERS Safety Report 10884327 (Version 1)
Quarter: 2015Q1

REPORT INFORMATION
  Report Type: Spontaneous
  Country: DE (occurrence: None)
  Receive Date: 20150227
  Receipt Date: 20150227
  Transmission Date: 20150721
  Serious: Yes (Other)
  Sender: FDA-Public Use
  Company Number: DE-2015VAL000170

PATIENT
  Sex: Male

DRUGS (2)
  1. ROCALTROL [Suspect]
     Active Substance: CALCITRIOL
     Indication: PSEUDOHYPOPARATHYROIDISM
  2. LAMOTRIGIN [Suspect]
     Active Substance: LAMOTRIGINE
     Indication: EPILEPSY

REACTIONS (7)
  - Drug interaction [None]
  - Autoimmune disorder [None]
  - Vitamin D deficiency [None]
  - Epilepsy [None]
  - Tonsillar inflammation [None]
  - Off label use [None]
  - Blood pressure increased [None]
